FAERS Safety Report 20484708 (Version 1)
Quarter: 2022Q1

REPORT INFORMATION
  Report Type: Spontaneous
  Country: US (occurrence: US)
  Receive Date: 20220217
  Receipt Date: 20220217
  Transmission Date: 20220424
  Serious: No
  Sender: FDA-Public Use
  Company Number: US-drreddys-SPO/USA/22/0146773

PATIENT
  Age: 47 Year
  Sex: Female

DRUGS (1)
  1. ZENATANE [Suspect]
     Active Substance: ISOTRETINOIN
     Indication: Product used for unknown indication
     Dosage: RMA ISSUE DATE:03 JANUARY 2022 03:21:41 PM, 24 NOVEMBER 2021 04:49:28 PM, 24 NOVEMBER 2021 04:49:28

REACTIONS (1)
  - Adverse drug reaction [Unknown]
